FAERS Safety Report 4334349-8 (Version None)
Quarter: 2004Q2

REPORT INFORMATION
  Report Type: 
  Country: None (occurrence: None)
  Receive Date: 20040405
  Receipt Date: 20040326
  Transmission Date: 20050107
  Serious: Yes (Other)
  Sender: FDA-Public Use
  Company Number: GBWYE667726MAR04

PATIENT
  Age: 17 Year
  Sex: Male

DRUGS (1)
  1. MINOCIN [Suspect]

REACTIONS (3)
  - CONDITION AGGRAVATED [None]
  - HEADACHE [None]
  - VISUAL DISTURBANCE [None]
